FAERS Safety Report 4822877-8 (Version None)
Quarter: 2005Q4

REPORT INFORMATION
  Report Type: 
  Country: None (occurrence: None)
  Receive Date: 20051104
  Receipt Date: 20051028
  Transmission Date: 20060501
  Serious: Yes (Hospitalization)
  Sender: FDA-Public Use
  Company Number: KII-2005-0019330

PATIENT
  Age: 2 Year
  Sex: Male
  Weight: 12.7 kg

DRUGS (3)
  1. MORPHINE [Suspect]
     Indication: ACCIDENTAL EXPOSURE
     Dosage: SEE IMAGE, ORAL
     Route: 048
     Dates: start: 20051002, end: 20051002
  2. BENZODIAZEPINE DERIVATIVES [Suspect]
     Indication: ACCIDENTAL EXPOSURE
     Dosage: SEE IMAGE, ORAL
     Route: 048
     Dates: start: 20051002, end: 20051002
  3. COLD MEDICINE [Concomitant]

REACTIONS (2)
  - ACCIDENTAL DRUG INTAKE BY CHILD [None]
  - RESPIRATORY DEPRESSION [None]
